FAERS Safety Report 4952619-7 (Version None)
Quarter: 2006Q1

REPORT INFORMATION
  Report Type: 
  Country: None (occurrence: None)
  Receive Date: 20060317
  Receipt Date: 20060307
  Transmission Date: 20060701
  Serious: Yes (Life-Threatening)
  Sender: FDA-Public Use
  Company Number: HQWYE212508MAR06

PATIENT
  Sex: Female

DRUGS (2)
  1. EFFEXOR XR [Suspect]
     Indication: DEPRESSION
     Dosage: 225 MG 1X PER 1 DAY ORAL
     Route: 048
  2. ZYVOX [Suspect]
     Indication: INFECTION
     Dosage: ORAL
     Route: 048

REACTIONS (10)
  - COORDINATION ABNORMAL [None]
  - DISORIENTATION [None]
  - DRUG INTERACTION [None]
  - DRUG WITHDRAWAL SYNDROME [None]
  - INFECTION [None]
  - IRRITABILITY [None]
  - MALAISE [None]
  - MANIA [None]
  - NYSTAGMUS [None]
  - SYNCOPE [None]
